FAERS Safety Report 7243648-1 (Version None)
Quarter: 2011Q1

REPORT INFORMATION
  Report Type: 
  Country: None (occurrence: None)
  Receive Date: 20110125
  Receipt Date: 20110117
  Transmission Date: 20110831
  Serious: Yes (Other)
  Sender: FDA-Public Use
  Company Number: PHHY2010CA12359

PATIENT
  Sex: Male

DRUGS (14)
  1. GLUCOPHAGE [Concomitant]
     Dosage: 850 (UNTIS NOT SPECIFIED) IN THE MORNING AND 500 IN NINGHT
  2. BETA BLOCKING AGENTS [Concomitant]
  3. DIURETICS [Concomitant]
  4. CLONIDINE [Concomitant]
     Dosage: 0.1 MG, BID
  5. ASAPHEN [Concomitant]
     Dosage: 80 MG, DAILY
  6. LOZIDE [Concomitant]
  7. NOVOPUROL [Concomitant]
     Dosage: 300 MG, UNK
  8. COVERSYL [Concomitant]
     Dosage: 8 MG, UNK
  9. NORVASC [Concomitant]
  10. LIPITOR [Concomitant]
  11. IECA [Concomitant]
  12. DIAMICRON [Concomitant]
  13. ALISKIREN [Suspect]
     Indication: HYPERTENSION
     Dosage: 300 MG DAILY
     Route: 048
     Dates: start: 20100113, end: 20100210
  14. TENORMIN [Concomitant]
     Dosage: 50 MG, BID

REACTIONS (2)
  - DIZZINESS [None]
  - NAUSEA [None]
